FAERS Safety Report 7748368-2 (Version None)
Quarter: 2011Q3

REPORT INFORMATION
  Report Type: 
  Country: None (occurrence: None)
  Receive Date: 20110913
  Receipt Date: 20110906
  Transmission Date: 20111222
  Serious: Yes (Life-Threatening, Hospitalization)
  Sender: FDA-Public Use
  Company Number: JP-AMGEN-JPNCT2011021756

PATIENT
  Age: 68 Year
  Sex: Female
  Weight: 74 kg

DRUGS (4)
  1. PANITUMUMAB [Suspect]
     Indication: COLORECTAL CANCER
     Dosage: 400 MG, Q2WK
     Route: 041
     Dates: start: 20110314, end: 20110314
  2. SELBEX [Concomitant]
     Route: 048
     Dates: start: 20110214
  3. FERROUS CITRATE [Concomitant]
     Route: 048
     Dates: start: 20101112
  4. ADONA [Concomitant]
     Route: 048
     Dates: start: 20110228

REACTIONS (1)
  - ANAPHYLACTIC SHOCK [None]
